FAERS Safety Report 8925230 (Version 3)
Quarter: 2013Q3

REPORT INFORMATION
  Report Type: Spontaneous
  Country: US (occurrence: None)
  Receive Date: 20121116
  Receipt Date: 20130929
  Transmission Date: 20140515
  Serious: Yes (Hospitalization)
  Sender: FDA-Public Use
  Company Number: JPI-P-026210

PATIENT
  Age: 59 Year
  Sex: Female

DRUGS (5)
  1. XYREM (500 MILLIGRAM/MILLILITERS, SOLUTION) (SODIUM OXYBATE) [Suspect]
     Indication: CATAPLEXY
     Dosage: (2 GM, 2 IN 1 D)
     Route: 048
     Dates: start: 20030814
  2. ESOMEPRAZONE MAGNESIUM [Concomitant]
  3. PROGESTERONE [Concomitant]
  4. MODAFINIL [Concomitant]
  5. METAXALONE [Concomitant]

REACTIONS (2)
  - Synovial cyst [None]
  - Joint arthroplasty [None]
